FAERS Safety Report 5124644-7 (Version None)
Quarter: 2006Q4

REPORT INFORMATION
  Report Type: 
  Country: None (occurrence: None)
  Receive Date: 20061006
  Receipt Date: 20061006
  Transmission Date: 20070319
  Serious: Yes (Hospitalization)
  Sender: FDA-Public Use
  Company Number: None

PATIENT
  Sex: Female

DRUGS (9)
  1. VALCYTE [Suspect]
     Indication: ANTIVIRAL PROPHYLAXIS
     Dosage: 450MG EVERY OTHER DAY PO
     Route: 048
  2. MYCOPHENOLATE 1250MG [Suspect]
     Indication: IMMUNOSUPPRESSION
     Dosage: 1250MG TWICE A DAY PO
     Route: 048
  3. TACROLIMUS [Concomitant]
  4. PREDNISONE TAB [Concomitant]
  5. CIPROFLOXACIN [Concomitant]
  6. CLOTRIMAZOLE [Concomitant]
  7. NEUPOGEN [Concomitant]
  8. VICODIN [Concomitant]
  9. VANCOMYCIN [Concomitant]

REACTIONS (2)
  - NEUTROPENIA [None]
  - WHITE BLOOD CELL COUNT DECREASED [None]
